FAERS Safety Report 14436641 (Version 1)
Quarter: 2018Q1

REPORT INFORMATION
  Report Type: Spontaneous
  Country: US (occurrence: US)
  Receive Date: 20180125
  Receipt Date: 20180125
  Transmission Date: 20180509
  Serious: No
  Sender: FDA-Public Use
  Company Number: US-LUPIN PHARMACEUTICALS INC.-2017-01720

PATIENT
  Sex: Female
  Weight: 63.49 kg

DRUGS (5)
  1. TRAMADOL HYDROCHLORIDE EXTENDED RELEASE [Suspect]
     Active Substance: TRAMADOL HYDROCHLORIDE
     Indication: MUSCULOSKELETAL PAIN
     Dosage: 200 MG, QD
     Route: 048
  2. OXYCODONE [Concomitant]
     Active Substance: OXYCODONE
     Indication: NECK PAIN
     Dosage: UNK, PRN
     Route: 048
  3. OXYCODONE [Concomitant]
     Active Substance: OXYCODONE
     Indication: MUSCULOSKELETAL PAIN
  4. TRAMADOL HYDROCHLORIDE EXTENDED RELEASE [Suspect]
     Active Substance: TRAMADOL HYDROCHLORIDE
     Indication: NECK PAIN
     Dosage: 100 MG, QD
     Route: 048
  5. TRAMADOL HYDROCHLORIDE EXTENDED RELEASE [Suspect]
     Active Substance: TRAMADOL HYDROCHLORIDE
     Dosage: 100 MG, BID
     Route: 048

REACTIONS (1)
  - Drug effect incomplete [Unknown]
